FAERS Safety Report 19545831 (Version 1)
Quarter: 2021Q3

REPORT INFORMATION
  Report Type: Spontaneous
  Country: DE (occurrence: DE)
  Receive Date: 20210713
  Receipt Date: 20210713
  Transmission Date: 20211014
  Serious: Yes (Hospitalization, Other)
  Sender: FDA-Public Use
  Company Number: DE-MYLANLABS-2021M1040900

PATIENT
  Sex: Female

DRUGS (15)
  1. NIVOLUMAB [Suspect]
     Active Substance: NIVOLUMAB
     Indication: MALIGNANT MELANOMA
     Dosage: 1 MILLIGRAM/KILOGRAM
     Route: 065
  2. INSULIN [Concomitant]
     Active Substance: INSULIN NOS
     Indication: DIABETES MELLITUS
     Dosage: UNK
     Route: 065
  3. AMPHOTERICIN B. [Concomitant]
     Active Substance: AMPHOTERICIN B
     Indication: OESOPHAGEAL CANDIDIASIS
     Dosage: UNK
     Route: 065
  4. NIVOLUMAB [Suspect]
     Active Substance: NIVOLUMAB
     Dosage: 240 MILLIGRAM, Q2WK
     Route: 042
  5. METFORMIN [Concomitant]
     Active Substance: METFORMIN HYDROCHLORIDE
     Indication: TYPE 2 DIABETES MELLITUS
     Dosage: UNK
     Route: 065
  6. SITAGLIPTIN [Concomitant]
     Active Substance: SITAGLIPTIN
     Indication: TYPE 2 DIABETES MELLITUS
     Dosage: UNK
     Route: 065
  7. IBUPROFEN. [Concomitant]
     Active Substance: IBUPROFEN
     Indication: ANALGESIC THERAPY
     Dosage: UNK
     Route: 065
  8. PREDNISOLONE. [Suspect]
     Active Substance: PREDNISOLONE
     Dosage: 1 MILLIGRAM/KILOGRAM
     Route: 065
  9. IPILIMUMAB [Suspect]
     Active Substance: IPILIMUMAB
     Indication: MALIGNANT MELANOMA
     Dosage: 3 MILLIGRAM/KILOGRAM
     Route: 065
  10. LORATADINE. [Concomitant]
     Active Substance: LORATADINE
     Indication: RASH
     Dosage: 10 MILLIGRAM, UPTO 4 TIMES DAILY
     Route: 065
  11. METAMIZOLE [Concomitant]
     Active Substance: METAMIZOLE
     Indication: ANALGESIC THERAPY
     Dosage: UNK
     Route: 065
  12. L?THYROXINE                        /00068001/ [Concomitant]
     Active Substance: LEVOTHYROXINE
     Indication: AUTOIMMUNE THYROIDITIS
     Dosage: 100 MICROGRAM, QD
     Route: 065
  13. PREDNISOLONE. [Suspect]
     Active Substance: PREDNISOLONE
     Indication: RHEUMATOID ARTHRITIS
     Dosage: 2 MILLIGRAM/KILOGRAM (INCREASED FOR AUTOIMMUNE COLITIS AND CANDIDA ESOPHAGITIS)
     Route: 065
  14. OXYCODONE [Concomitant]
     Active Substance: OXYCODONE
     Indication: ANALGESIC THERAPY
     Dosage: UNK
     Route: 065
  15. TRIAMCINOLONE ACETONIDE. [Concomitant]
     Active Substance: TRIAMCINOLONE ACETONIDE
     Indication: RASH
     Dosage: UNK
     Route: 061

REACTIONS (8)
  - Autoimmune colitis [Recovered/Resolved]
  - Autoimmune thyroiditis [Unknown]
  - Rheumatoid arthritis [Unknown]
  - Oesophageal candidiasis [Recovered/Resolved]
  - Hypothyroidism [Unknown]
  - Autoimmune hepatitis [Recovering/Resolving]
  - Diarrhoea [Recovered/Resolved]
  - Diabetes mellitus [Unknown]
